FAERS Safety Report 11310764 (Version 3)
Quarter: 2015Q4

REPORT INFORMATION
  Report Type: Spontaneous
  Country: US (occurrence: US)
  Receive Date: 20150725
  Receipt Date: 20151015
  Transmission Date: 20160304
  Serious: Yes (Other)
  Sender: FDA-Public Use
  Company Number: US-009507513-1507USA010193

PATIENT
  Sex: Female
  Weight: 119.73 kg

DRUGS (1)
  1. IMPLANON [Suspect]
     Active Substance: ETONOGESTREL
     Indication: CONTRACEPTION
     Route: 030

REACTIONS (6)
  - Device deployment issue [Recovered/Resolved]
  - Maternal exposure before pregnancy [Unknown]
  - Device difficult to use [Recovered/Resolved]
  - Implant site scar [Unknown]
  - Incorrect route of drug administration [Unknown]
  - Surgery [Recovered/Resolved]
